FAERS Safety Report 18408552 (Version 2)
Quarter: 2020Q4

REPORT INFORMATION
  Report Type: Spontaneous
  Country: FR (occurrence: FR)
  Receive Date: 20201021
  Receipt Date: 20201030
  Transmission Date: 20210114
  Serious: Yes (Hospitalization)
  Sender: FDA-Public Use
  Company Number: FR-TEVA-2020-FR-1839771

PATIENT
  Age: 83 Year
  Sex: Male
  Weight: 74 kg

DRUGS (7)
  1. PREGABALINE [Suspect]
     Active Substance: PREGABALIN
     Indication: PAIN IN EXTREMITY
     Dosage: UNIT DOSE : 50 MG
     Route: 048
     Dates: start: 20200518, end: 20200622
  2. DIFFU K, GELULE [Concomitant]
     Active Substance: POTASSIUM CHLORIDE
     Dosage: UNIT DOSE : 4 DOSAGE FORMS
     Route: 048
  3. DOLIPRANE [Concomitant]
     Active Substance: ACETAMINOPHEN
     Dosage: UNIT DOSE : 8 DOSAGE FORMS
     Route: 048
  4. ACIDE FOLIQUE [Suspect]
     Active Substance: FOLIC ACID
     Indication: VITAMIN SUPPLEMENTATION
     Dosage: UNIT DOSE : 15 MG
     Route: 048
     Dates: start: 20200514, end: 20200622
  5. KARDEGIC [Concomitant]
     Active Substance: ASPIRIN DL-LYSINE
     Dosage: UNIT DOSE : 1 DOSAGE FORMS
     Route: 048
  6. ECONAZOLE. [Concomitant]
     Active Substance: ECONAZOLE NITRATE
     Dosage: UNIT DOSE : 2 DOSAGE FORMS
     Route: 003
  7. LOVENOX [Concomitant]
     Active Substance: ENOXAPARIN SODIUM
     Dosage: UNIT DOSE : 1 DOSAGE FORMS
     Route: 058

REACTIONS (3)
  - Hepatocellular injury [Recovering/Resolving]
  - Condition aggravated [Recovering/Resolving]
  - Jaundice cholestatic [Recovering/Resolving]

NARRATIVE: CASE EVENT DATE: 20200615
